FAERS Safety Report 10615294 (Version 3)
Quarter: 2015Q1

REPORT INFORMATION
  Report Type: Spontaneous
  Country: US (occurrence: US)
  Receive Date: 20141201
  Receipt Date: 20150202
  Transmission Date: 20150720
  Serious: Yes (Other)
  Sender: FDA-Public Use
  Company Number: US-PFIZER INC-2014324609

PATIENT
  Age: 57 Year
  Sex: Female
  Weight: 98 kg

DRUGS (4)
  1. NEURONTIN [Suspect]
     Active Substance: GABAPENTIN
     Indication: NEUROPATHY PERIPHERAL
     Dosage: UNK
  2. L-TYROSINE [Concomitant]
     Dosage: 1000 MG, 3X/DAY
  3. N-ACETYLCYSTEINE [Concomitant]
     Active Substance: ACETYLCYSTEINE
     Dosage: 600 MG, 2X/DAY
  4. METHYLFOLATE [Concomitant]
     Dosage: 800 ?G, 3X/DAY

REACTIONS (6)
  - Spinal disorder [Unknown]
  - Insomnia [Unknown]
  - Drug ineffective [Unknown]
  - Burning sensation [Unknown]
  - Paraesthesia [Unknown]
  - Sensory disturbance [Unknown]
